FAERS Safety Report 8800875 (Version 1)
Quarter: 2012Q4

REPORT INFORMATION
  Report Type: 
  Country: CN (occurrence: CN)
  Receive Date: 20120921
  Receipt Date: 20120921
  Transmission Date: 20130627
  Serious: Yes (Other)
  Sender: FDA-Public Use
  Company Number: CN-PFIZER INC-2012232675

PATIENT
  Age: 50 Year
  Sex: Female

DRUGS (6)
  1. EFEXOR XR [Suspect]
     Indication: SOMATISATION DISORDER
     Dosage: 37.5 mg, 1x/day
     Route: 048
     Dates: start: 20100612, end: 2010
  2. EFEXOR XR [Suspect]
     Dosage: 225 mg, daily
     Route: 048
     Dates: start: 2010, end: 20100618
  3. CLONAZEPAM [Concomitant]
     Indication: SOMATISATION DISORDER
     Dosage: 2 mg, 3x/day
     Route: 048
     Dates: start: 20100612, end: 20100618
  4. QUETIAPINE [Concomitant]
     Indication: SOMATISATION DISORDER
     Dosage: 50-100mg once daily
     Route: 048
     Dates: start: 20100612, end: 20100618
  5. INTRALIPID [Concomitant]
     Dosage: UNK, 2x/day
     Route: 042
  6. SALVIA [Concomitant]
     Dosage: UNK

REACTIONS (5)
  - Haemorrhage [Recovered/Resolved]
  - Haemoglobin decreased [Recovered/Resolved]
  - Blood fibrinogen decreased [Recovered/Resolved]
  - Fall [Recovered/Resolved]
  - Ecchymosis [Recovered/Resolved]
